FAERS Safety Report 9797951 (Version 3)
Quarter: 2014Q1

REPORT INFORMATION
  Report Type: Report from Study
  Country: MX (occurrence: MX)
  Receive Date: 20140106
  Receipt Date: 20140110
  Transmission Date: 20141002
  Serious: Yes (Death, Hospitalization)
  Sender: FDA-Public Use
  Company Number: PHHY2012MX114423

PATIENT
  Age: 34 Year
  Sex: Female

DRUGS (2)
  1. CO-DIOVAN [Suspect]
     Indication: HYPERTENSION
     Dosage: 1 DF (80/12.5MG) DAILY
     Route: 048
  2. B COMPLEX [Concomitant]
     Indication: NERVOUS SYSTEM DISORDER
     Dosage: 1 DF, UNK
     Dates: start: 201212

REACTIONS (6)
  - Pancreatitis [Fatal]
  - Abdominal pain [Fatal]
  - Feeling abnormal [Not Recovered/Not Resolved]
  - Diarrhoea [Not Recovered/Not Resolved]
  - Back pain [Not Recovered/Not Resolved]
  - Insomnia [Not Recovered/Not Resolved]
